FAERS Safety Report 8355274-1 (Version None)
Quarter: 2012Q2

REPORT INFORMATION
  Report Type: 
  Country: None (occurrence: None)
  Receive Date: 20120511
  Receipt Date: 20120504
  Transmission Date: 20120825
  Serious: Yes (Death)
  Sender: FDA-Public Use
  Company Number: US-ACTELION-A-US2012-65165

PATIENT

DRUGS (4)
  1. VENTAVIS [Suspect]
     Indication: PULMONARY ARTERIAL HYPERTENSION
     Dosage: UNK
     Route: 055
     Dates: start: 20100810, end: 20120220
  2. LETAIRIS [Concomitant]
  3. COUMADIN [Concomitant]
  4. SILDENAFIL [Concomitant]

REACTIONS (2)
  - RESPIRATORY FAILURE [None]
  - WEGENER'S GRANULOMATOSIS [None]
